FAERS Safety Report 20179543 (Version 1)
Quarter: 2021Q4

REPORT INFORMATION
  Report Type: Spontaneous
  Country: IT (occurrence: IT)
  Receive Date: 20211214
  Receipt Date: 20211214
  Transmission Date: 20220303
  Serious: Yes (Hospitalization, Other)
  Sender: FDA-Public Use
  Company Number: None

PATIENT
  Sex: Female
  Weight: 1.64 kg

DRUGS (3)
  1. AMOXICILLIN [Suspect]
     Active Substance: AMOXICILLIN
     Indication: Antibiotic therapy
     Dosage: 1 G, BID
     Route: 064
  2. TAZOBACTAM [Suspect]
     Active Substance: TAZOBACTAM
     Indication: Antibiotic therapy
     Dosage: UNK ()
     Route: 064
  3. PIPERACILLIN [Suspect]
     Active Substance: PIPERACILLIN
     Indication: Antibiotic therapy
     Dosage: UNK ()
     Route: 064

REACTIONS (4)
  - Neonatal respiratory distress [Unknown]
  - Immature respiratory system [Unknown]
  - Premature baby [Unknown]
  - Foetal exposure during pregnancy [Unknown]
